FAERS Safety Report 4933068-4 (Version None)
Quarter: 2006Q1

REPORT INFORMATION
  Report Type: 
  Country: None (occurrence: None)
  Receive Date: 20060306
  Receipt Date: 20060223
  Transmission Date: 20060701
  Serious: Yes (Other)
  Sender: FDA-Public Use
  Company Number: PHEH2006US02641

PATIENT
  Age: 56 Year
  Sex: Male
  Weight: 102.04 kg

DRUGS (1)
  1. EXJADE [Suspect]
     Indication: CHELATION THERAPY
     Dosage: 1750 MG, QD
     Dates: start: 20051231, end: 20060207

REACTIONS (1)
  - BLOOD BILIRUBIN INCREASED [None]
